FAERS Safety Report 5251835-7 (Version None)
Quarter: 2007Q1

REPORT INFORMATION
  Report Type: 
  Country: None (occurrence: None)
  Receive Date: 20070228
  Receipt Date: 20070216
  Transmission Date: 20070707
  Serious: Yes (Hospitalization)
  Sender: FDA-Public Use
  Company Number: PE-PFIZER INC-2007011368

PATIENT
  Sex: Male
  Weight: 66 kg

DRUGS (4)
  1. SU-011,248 [Suspect]
     Indication: METASTATIC RENAL CELL CARCINOMA
     Route: 048
  2. CIPROFLOXACIN [Concomitant]
     Route: 048
     Dates: start: 20070123, end: 20070206
  3. CLINDAMYCIN [Concomitant]
     Route: 048
     Dates: start: 20070124, end: 20070206
  4. RANITIDINE [Concomitant]
     Route: 048
     Dates: start: 20070123

REACTIONS (3)
  - CELLULITIS [None]
  - SUBDURAL HAEMATOMA [None]
  - THROMBOCYTOPENIA [None]
